FAERS Safety Report 9570976 (Version 1)
Quarter: 2013Q3

REPORT INFORMATION
  Report Type: Spontaneous
  Country: US (occurrence: None)
  Receive Date: 20130927
  Receipt Date: 20130927
  Transmission Date: 20140515
  Serious: No
  Sender: FDA-Public Use
  Company Number: None

PATIENT
  Age: 55 Year
  Sex: Female

DRUGS (2)
  1. FORTEO [Suspect]
     Dosage: INJECT 20 MCG UNDER THE SKIN DAILY
     Dates: start: 20130311
  2. HUMIRA [Concomitant]

REACTIONS (2)
  - Dyspnoea [None]
  - Pulmonary mass [None]
